FAERS Safety Report 9876147 (Version 1)
Quarter: 2014Q1

REPORT INFORMATION
  Report Type: Other
  Country: US (occurrence: US)
  Receive Date: 20140206
  Receipt Date: 20140206
  Transmission Date: 20141002
  Serious: No
  Sender: FDA-Public Use
  Company Number: US-ACORDA-ACO_36855_2013

PATIENT
  Age: 57 Year
  Sex: Female
  Weight: 56.24 kg

DRUGS (3)
  1. AMPYRA [Suspect]
     Indication: GAIT DISTURBANCE
     Dosage: 5 MG, Q 12 HRS
     Route: 048
     Dates: start: 201305, end: 2013
  2. HORIZANT [Concomitant]
     Indication: MUSCLE SPASMS
     Dosage: 1/2 TABLET, AS NEEDED
     Route: 065
  3. XOPENEX [Concomitant]
     Indication: DYSPNOEA
     Dosage: UNK,AS NEEDED
     Route: 065

REACTIONS (2)
  - Anxiety [Recovered/Resolved]
  - Wrong technique in drug usage process [Unknown]
